FAERS Safety Report 4547697-3 (Version None)
Quarter: 2005Q1

REPORT INFORMATION
  Report Type: 
  Country: None (occurrence: None)
  Receive Date: 20050107
  Receipt Date: 20041224
  Transmission Date: 20050727
  Serious: Yes (Other)
  Sender: FDA-Public Use
  Company Number: NLWYE306624DEC04

PATIENT
  Sex: Male

DRUGS (5)
  1. ENBREL [Suspect]
     Indication: RHEUMATOID ARTHRITIS
     Route: 058
     Dates: start: 20020101
  2. UNSPECIFIED MEDICATION [Concomitant]
     Indication: DERMATITIS ALLERGIC
     Route: 061
  3. ASCAL [Concomitant]
     Dosage: 100 MG EVERY
  4. UNSPECIFIED MEDICATION [Concomitant]
     Route: 055
  5. UNSPECIFIED MEDICATION [Concomitant]

REACTIONS (1)
  - RETINAL VASCULAR THROMBOSIS [None]
